FAERS Safety Report 9270379 (Version 2)
Quarter: 2013Q3

REPORT INFORMATION
  Report Type: Spontaneous
  Country: US (occurrence: US)
  Receive Date: 20130503
  Receipt Date: 20130801
  Transmission Date: 20140515
  Serious: Yes (Other)
  Sender: FDA-Public Use
  Company Number: US-UCBSA-082077

PATIENT
  Age: 49 Year
  Sex: Female
  Weight: 80 kg

DRUGS (3)
  1. VIMPAT [Suspect]
     Indication: CONVULSION
     Dosage: STRENGHT:100 MG
     Dates: end: 201303
  2. LEVETIRACETAM [Concomitant]
     Indication: CONVULSION
     Dates: start: 200811
  3. TOPIRAMATE [Concomitant]
     Dates: start: 200811

REACTIONS (3)
  - Convulsion [Not Recovered/Not Resolved]
  - Fall [Unknown]
  - Joint injury [Unknown]
